FAERS Safety Report 13848186 (Version 2)
Quarter: 2017Q3

REPORT INFORMATION
  Report Type: Spontaneous
  Country: US (occurrence: US)
  Receive Date: 20170809
  Receipt Date: 20170816
  Transmission Date: 20171127
  Serious: Yes (Other)
  Sender: FDA-Public Use
  Company Number: US-PURDUE-USA-2017-0138700

PATIENT
  Age: 74 Year
  Sex: Female

DRUGS (3)
  1. BUTRANS [Suspect]
     Active Substance: BUPRENORPHINE
     Indication: ANALGESIC THERAPY
     Dosage: 10 MCG/HR, WEEKLY
     Route: 062
     Dates: start: 201701, end: 201704
  2. BUTRANS [Suspect]
     Active Substance: BUPRENORPHINE
     Indication: PAIN
     Dosage: 15 MCG/HR, WEEKLY
     Route: 062
     Dates: start: 201704
  3. BUTRANS [Suspect]
     Active Substance: BUPRENORPHINE
     Dosage: 5 MCG/HR, WEEKLY
     Route: 062
     Dates: start: 20170112

REACTIONS (12)
  - Fall [Unknown]
  - Application site scar [Unknown]
  - Product adhesion issue [Unknown]
  - Cellulitis [Unknown]
  - Application site infection [Unknown]
  - Application site vesicles [Not Recovered/Not Resolved]
  - Skin injury [Unknown]
  - Application site erythema [Not Recovered/Not Resolved]
  - Application site ulcer [Unknown]
  - Application site rash [Not Recovered/Not Resolved]
  - Application site pruritus [Unknown]
  - Application site pain [Unknown]

NARRATIVE: CASE EVENT DATE: 201701
